FAERS Safety Report 10310638 (Version 2)
Quarter: 2014Q3

REPORT INFORMATION
  Report Type: Spontaneous
  Country: US (occurrence: US)
  Receive Date: 20140717
  Receipt Date: 20140821
  Transmission Date: 20150326
  Serious: No
  Sender: FDA-Public Use
  Company Number: US-PFIZER INC-2014197485

PATIENT
  Age: 58 Year
  Sex: Female
  Weight: 63.49 kg

DRUGS (1)
  1. PREMARIN [Suspect]
     Active Substance: ESTROGENS, CONJUGATED
     Dosage: 0.9 MG, DAILY
     Route: 048
     Dates: start: 2001

REACTIONS (3)
  - Peripheral swelling [Recovering/Resolving]
  - Rash [Recovering/Resolving]
  - Hot flush [Recovering/Resolving]

NARRATIVE: CASE EVENT DATE: 20140712
